FAERS Safety Report 6138698-2 (Version None)
Quarter: 2009Q1

REPORT INFORMATION
  Report Type: 
  Country: None (occurrence: None)
  Receive Date: 20090331
  Receipt Date: 20090325
  Transmission Date: 20090719
  Serious: Yes (Hospitalization)
  Sender: FDA-Public Use
  Company Number: US-JNJFOC-20090306725

PATIENT
  Age: 61 Year
  Sex: Male

DRUGS (2)
  1. FLEXERIL [Suspect]
     Indication: DRUG USE FOR UNKNOWN INDICATION
  2. ROZEREM [Interacting]
     Indication: INSOMNIA

REACTIONS (2)
  - DRUG INTERACTION [None]
  - HALLUCINATION [None]
